FAERS Safety Report 5526629-5 (Version None)
Quarter: 2007Q4

REPORT INFORMATION
  Report Type: 
  Country: None (occurrence: None)
  Receive Date: 20071127
  Receipt Date: 20071119
  Transmission Date: 20080405
  Serious: Yes (Other)
  Sender: FDA-Public Use
  Company Number: US-AMGEN-STX253240

PATIENT
  Sex: Male

DRUGS (2)
  1. ENBREL [Suspect]
     Indication: PSORIASIS
     Route: 058
     Dates: start: 20061201
  2. UNSPECIFIED ANTIDIABETIC AGENT [Concomitant]

REACTIONS (2)
  - DIABETES MELLITUS [None]
  - PSORIASIS [None]
